FAERS Safety Report 23251345 (Version 2)
Quarter: 2023Q4

REPORT INFORMATION
  Report Type: Other
  Country: HK (occurrence: HK)
  Receive Date: 20231201
  Receipt Date: 20231218
  Transmission Date: 20240110
  Serious: Yes (Other)
  Sender: FDA-Public Use
  Company Number: HK-Merck Healthcare KGaA-2023489580

PATIENT
  Age: 34 Year
  Sex: Female

DRUGS (1)
  1. LEVOTHYROXINE [Suspect]
     Active Substance: LEVOTHYROXINE
     Indication: Hypothyroidism

REACTIONS (9)
  - Thyroid stimulating immunoglobulin increased [Unknown]
  - Anti-thyroid antibody positive [Unknown]
  - Hyperthyroidism [Recovering/Resolving]
  - Weight gain poor [Unknown]
  - Iron deficiency anaemia [Unknown]
  - Vomiting [Unknown]
  - Nausea [Unknown]
  - Live birth [Recovered/Resolved]
  - Maternal exposure during pregnancy [Recovered/Resolved]
